FAERS Safety Report 8230815-3 (Version None)
Quarter: 2012Q1

REPORT INFORMATION
  Report Type: 
  Country: None (occurrence: None)
  Receive Date: 20120320
  Receipt Date: 20120214
  Transmission Date: 20120608
  Serious: Yes (Hospitalization)
  Sender: FDA-Public Use
  Company Number: 1195167

PATIENT
  Age: 28 Year
  Sex: Female

DRUGS (11)
  1. DEXAMETHASONE 4MG TAB [Suspect]
     Indication: GENERAL ANAESTHESIA
     Dosage: INTRAVENOUS  (NOT OTHERWISE SPECIFIED)
     Route: 042
  2. (CYCLIZINE) [Suspect]
     Indication: GENERAL ANAESTHESIA
     Dosage: INTRAVENOUS  (NOT OTHERWISE SPECIFIED)
     Route: 042
  3. (PETHIDINHJE) [Suspect]
     Indication: GENERAL ANAESTHESIA
     Dosage: INTRAVENOUS  (NOT OTHERWISE SPECIFIED)
     Route: 042
     Dates: start: 20111010, end: 20111010
  4. (REMIFENTANIL HYDROCHLORIDE) [Suspect]
     Indication: GENERAL ANAESTHESIA
     Dosage: NTRAVENOUS  (NOT OTHERWISE SPECIFIED)
     Route: 042
  5. (ANTIDEPRESSANTS) [Concomitant]
  6. ONDANSETRON [Suspect]
     Indication: GENERAL ANAESTHESIA
     Dosage: INTRAVENOUS
     Route: 042
  7. FENTANYL-100 [Suspect]
     Indication: GENERAL ANAESTHESIA
     Dosage: INTRAVENOUS  (NOT OTHERWISE SPECIFIED)
     Route: 042
  8. SUPRANE [Suspect]
     Indication: GENERAL ANAESTHESIA
     Dosage: 1 TOTAL DOSE RESPIRATORY  (INHALATION)
     Route: 055
     Dates: start: 20111011
  9. SUPRANE [Suspect]
     Indication: CHOLEDOCHOLITHOTOMY
     Dosage: 1 TOTAL DOSE RESPIRATORY  (INHALATION)
     Route: 055
     Dates: start: 20111011
  10. ATRACURIUM BESYLATE [Suspect]
     Indication: GENERAL ANAESTHESIA
     Dosage: INTRAVENOUS  (NOT OTHERWISE SPECIFIED)
  11. SCOPOLAMINE [Suspect]
     Indication: GENERAL ANAESTHESIA
     Dosage: INTRAVENOUS  (NOT OTHERWISE SPECIFIED
     Route: 042
     Dates: start: 20111010, end: 20111010

REACTIONS (5)
  - BLOOD ALKALINE PHOSPHATASE INCREASED [None]
  - HEPATIC FUNCTION ABNORMAL [None]
  - BLOOD BILIRUBIN INCREASED [None]
  - ALANINE AMINOTRANSFERASE INCREASED [None]
  - ABDOMINAL PAIN [None]
